FAERS Safety Report 11024656 (Version 1)
Quarter: 2015Q2

REPORT INFORMATION
  Report Type: Spontaneous
  Country: CN (occurrence: CN)
  Receive Date: 20150414
  Receipt Date: 20150414
  Transmission Date: 20150821
  Serious: Yes (Other)
  Sender: FDA-Public Use
  Company Number: CN-AMGEN-CHNSP2015035354

PATIENT
  Age: 9 Year
  Sex: Male

DRUGS (3)
  1. IBUPROFEN. [Concomitant]
     Active Substance: IBUPROFEN
     Indication: PAIN
     Dosage: UNK
     Dates: start: 20150322
  2. PANTOPRAZOLE [Concomitant]
     Active Substance: PANTOPRAZOLE SODIUM
     Dosage: UNK
     Dates: start: 20150322
  3. ENBREL [Suspect]
     Active Substance: ETANERCEPT
     Indication: ANKYLOSING SPONDYLITIS
     Dosage: 1 DF, SINGLE
     Route: 065
     Dates: start: 20150404

REACTIONS (7)
  - Vomiting [Recovered/Resolved]
  - Hypophagia [Not Recovered/Not Resolved]
  - Pyrexia [Not Recovered/Not Resolved]
  - Frequent bowel movements [Not Recovered/Not Resolved]
  - White blood cell count increased [Unknown]
  - Product use issue [Unknown]
  - Haematochezia [Not Recovered/Not Resolved]

NARRATIVE: CASE EVENT DATE: 201504
